FAERS Safety Report 9359607 (Version 1)
Quarter: 2013Q2

REPORT INFORMATION
  Report Type: Spontaneous
  Country: US (occurrence: US)
  Receive Date: 20130620
  Receipt Date: 20130620
  Transmission Date: 20140414
  Serious: No
  Sender: FDA-Public Use
  Company Number: US-US-EMD SERONO, INC.-7019062

PATIENT
  Age: 44 Year
  Sex: Female

DRUGS (1)
  1. REBIF [Suspect]
     Indication: PRODUCT USED FOR UNKNOWN INDICATION
     Route: 058
     Dates: start: 20100628

REACTIONS (10)
  - Skin discolouration [Recovered/Resolved]
  - Insomnia [Recovered/Resolved]
  - Balance disorder [Unknown]
  - Malaise [Recovered/Resolved]
  - Thyroid disorder [Unknown]
  - Gait disturbance [Unknown]
  - Thyroid function test abnormal [Unknown]
  - Influenza like illness [Recovered/Resolved]
  - Injection site bruising [Unknown]
  - Pain [Recovered/Resolved]
